FAERS Safety Report 18963037 (Version 1)
Quarter: 2021Q1

REPORT INFORMATION
  Report Type: Report from Study
  Country: CH (occurrence: CH)
  Receive Date: 20210303
  Receipt Date: 20210303
  Transmission Date: 20210420
  Serious: Yes (Death, Life-Threatening)
  Sender: FDA-Public Use
  Company Number: CH-PFIZER INC-2021219386

PATIENT
  Age: 18 Month

DRUGS (4)
  1. SIROLIMUS. [Suspect]
     Active Substance: SIROLIMUS
     Indication: VASCULAR MALFORMATION
     Dosage: 0.6 MG/M2, DAILY
  2. TRIMETHOPRIM SULFAMETHOXAZOLE [Concomitant]
     Active Substance: SULFAMETHOXAZOLE\TRIMETHOPRIM
     Indication: ANTIBIOTIC PROPHYLAXIS
     Dosage: UNK, DAILY
  3. PENICILLINE [Concomitant]
     Active Substance: PENICILLIN G
     Indication: ANTIBIOTIC PROPHYLAXIS
     Dosage: UNK UNK, DAILY
  4. SIROLIMUS. [Suspect]
     Active Substance: SIROLIMUS
     Dosage: 0.4 MG/M2, DAILY

REACTIONS (5)
  - Meningitis pneumococcal [Recovered/Resolved]
  - Pneumonia adenoviral [Fatal]
  - Viral sepsis [Fatal]
  - Ileus [Fatal]
  - Pneumococcal sepsis [Recovered/Resolved]
